FAERS Safety Report 22867374 (Version 2)
Quarter: 2023Q4

REPORT INFORMATION
  Report Type: Spontaneous
  Country: US (occurrence: US)
  Receive Date: 20230825
  Receipt Date: 20231011
  Transmission Date: 20240109
  Serious: Yes (Congenital Anomaly, Other)
  Sender: FDA-Public Use
  Company Number: US-BRISTOL-MYERS SQUIBB COMPANY-2023-120079

PATIENT
  Age: 70 Year
  Sex: Male
  Weight: 99.6 kg

DRUGS (22)
  1. REVLIMID [Suspect]
     Active Substance: LENALIDOMIDE
     Indication: Plasma cell myeloma
     Dosage: 10 MG DAILY (NO SCHEDULED DAYS OFF)
     Dates: start: 202012, end: 20221212
  2. REVLIMID [Suspect]
     Active Substance: LENALIDOMIDE
     Dosage: DOSE : 5MG;     FREQ : ONCE A DAY FOR 21 DAYS AND OFF FOR 7 DAYS
     Route: 048
     Dates: start: 2020, end: 202212
  3. PAMIDRONATE [Concomitant]
     Active Substance: PAMIDRONATE DISODIUM
     Indication: Product used for unknown indication
     Dates: start: 202001
  4. BORTEZOMIB;DARATUMUMAB;DEXAMETHASONE;LENALIDOMIDE [Concomitant]
     Indication: Product used for unknown indication
     Dates: start: 202002
  5. MELPHALAN [Concomitant]
     Active Substance: MELPHALAN
     Indication: Product used for unknown indication
     Dates: start: 20200917
  6. MODERNA COVID-19 VACCINE [Concomitant]
     Active Substance: ELASOMERAN
     Indication: COVID-19 immunisation
     Dosage: THIRD DOSE
     Dates: start: 202107
  7. MODERNA COVID-19 VACCINE [Concomitant]
     Active Substance: ELASOMERAN
     Dosage: FOURTH DOSE
     Dates: start: 202203
  8. MODERNA COVID-19 VACCINE [Concomitant]
     Active Substance: ELASOMERAN
     Dates: end: 202102
  9. ALPHAGAN P [Concomitant]
     Active Substance: BRIMONIDINE TARTRATE
     Indication: Product used for unknown indication
     Route: 047
     Dates: start: 20220909
  10. OSCAL [CALCIUM CARBONATE] [Concomitant]
     Indication: Product used for unknown indication
     Route: 048
  11. COREG [Concomitant]
     Active Substance: CARVEDILOL
     Indication: Product used for unknown indication
     Route: 048
     Dates: start: 20210307
  12. VITAMIN D3 [Concomitant]
     Active Substance: CHOLECALCIFEROL
     Indication: Product used for unknown indication
     Dosage: 4000 UNITS
     Route: 048
  13. RESTASIS [Concomitant]
     Active Substance: CYCLOSPORINE
     Indication: Product used for unknown indication
     Route: 047
     Dates: start: 20220802
  14. FERROUS SULFATE [Concomitant]
     Active Substance: FERROUS SULFATE
     Indication: Product used for unknown indication
     Route: 048
     Dates: start: 20201201
  15. XALATAN [Concomitant]
     Active Substance: LATANOPROST
     Indication: Product used for unknown indication
     Route: 047
  16. MAGNESIUM HYDROXIDE [Concomitant]
     Active Substance: MAGNESIUM HYDROXIDE
     Indication: Product used for unknown indication
     Dosage: 400 MG/5 ML (NON CONCENTRATED)
     Route: 048
  17. MELATONIN [Concomitant]
     Active Substance: MELATONIN
     Indication: Product used for unknown indication
     Route: 048
     Dates: start: 20220505
  18. PAMELOR [Concomitant]
     Active Substance: NORTRIPTYLINE HYDROCHLORIDE
     Indication: Product used for unknown indication
     Route: 048
  19. PAPAYA ENZYMES [Concomitant]
     Indication: Product used for unknown indication
     Route: 048
  20. DESYREL [Concomitant]
     Active Substance: TRAZODONE HYDROCHLORIDE
     Indication: Product used for unknown indication
     Route: 048
     Dates: start: 20210718
  21. VITAMIN B COMPLEX [Concomitant]
     Active Substance: CYANOCOBALAMIN\DEXPANTHENOL\NIACINAMIDE\PYRIDOXINE HYDROCHLORIDE\RIBOFLAVIN 5^-PHOSPHATE SODIUM\THIA
     Indication: Product used for unknown indication
     Route: 048
     Dates: start: 20220626
  22. ZINCATE [Concomitant]
     Indication: Product used for unknown indication
     Route: 048

REACTIONS (13)
  - Thrombocytopenia [Unknown]
  - Plasma cell myeloma [Unknown]
  - COVID-19 [Unknown]
  - Neuropathy peripheral [Unknown]
  - Psoriatic arthropathy [Unknown]
  - Tooth disorder [Unknown]
  - Gilbert^s syndrome [Unknown]
  - Thyroid neoplasm [Unknown]
  - Blood bicarbonate decreased [Unknown]
  - Dyspnoea [Unknown]
  - Lung disorder [Unknown]
  - Cardiac disorder [Unknown]
  - Exposed bone in jaw [Unknown]

NARRATIVE: CASE EVENT DATE: 20220509
